FAERS Safety Report 8627508 (Version 2)
Quarter: 2012Q4

REPORT INFORMATION
  Report Type: 
  Country: US (occurrence: US)
  Receive Date: 20120621
  Receipt Date: 20121004
  Transmission Date: 20130627
  Serious: Yes (Other)
  Sender: FDA-Public Use
  Company Number: US-PFIZER INC-2012146248

PATIENT
  Age: 62 Year
  Sex: Female
  Weight: 73.02 kg

DRUGS (6)
  1. SUTENT [Suspect]
     Indication: GASTRINOMA
     Dosage: 37.5 mg (25mg + 12.5mg)
     Dates: start: 20120521, end: 2012
  2. ALLEGRA [Concomitant]
     Indication: SEASONAL ALLERGY
     Dosage: UNK
  3. ALLEGRA [Concomitant]
     Indication: SEASONAL ALLERGY
  4. SANDOSTATIN [Concomitant]
     Indication: GASTRINOMA
     Dosage: UNK, monthly
  5. PROTONIX [Concomitant]
     Indication: GASTROOESOPHAGEAL REFLUX DISEASE
     Dosage: 40 mg, 1x/day in the morning
  6. HYDROCHLOROTHIAZIDE [Concomitant]
     Dosage: 20 or 25mg in the morning

REACTIONS (8)
  - Haemoglobin decreased [Not Recovered/Not Resolved]
  - Dyspnoea [Not Recovered/Not Resolved]
  - Skin discomfort [Unknown]
  - Blister [Unknown]
  - Insomnia [Unknown]
  - Gait disturbance [Recovered/Resolved]
  - Palmar-plantar erythrodysaesthesia syndrome [Recovered/Resolved]
  - Asthenia [Not Recovered/Not Resolved]
